FAERS Safety Report 21603215 (Version 1)
Quarter: 2022Q4

REPORT INFORMATION
  Report Type: Spontaneous
  Country: US (occurrence: None)
  Receive Date: 20221115
  Receipt Date: 20221115
  Transmission Date: 20230113
  Serious: Yes (Other)
  Sender: FDA-Public Use
  Company Number: None

PATIENT
  Age: 79 Year
  Sex: Female
  Weight: 52.2 kg

DRUGS (5)
  1. ESTRADIOL [Suspect]
     Active Substance: ESTRADIOL
     Indication: Vulvovaginal dryness
     Dosage: OTHER QUANTITY : 1 SUPPOSITORY(IES);?FREQUENCY : AT BEDTIME;?
     Route: 067
     Dates: start: 20220926, end: 20221017
  2. ESTRADIOL [Suspect]
     Active Substance: ESTRADIOL
     Indication: Prophylaxis
  3. SYNTHROID [Concomitant]
     Active Substance: LEVOTHYROXINE SODIUM
  4. VALSARTAN [Concomitant]
     Active Substance: VALSARTAN
  5. NEXIUM [Concomitant]
     Active Substance: ESOMEPRAZOLE MAGNESIUM

REACTIONS (4)
  - Product substitution issue [None]
  - Urticaria [None]
  - Burning sensation [None]
  - Therapeutic response changed [None]

NARRATIVE: CASE EVENT DATE: 20221017
